FAERS Safety Report 5375548-6 (Version None)
Quarter: 2007Q2

REPORT INFORMATION
  Report Type: 
  Country: None (occurrence: None)
  Receive Date: 20070629
  Receipt Date: 20070618
  Transmission Date: 20071010
  Serious: Yes (Other)
  Sender: FDA-Public Use
  Company Number: SE-PFIZER INC-2007051311

PATIENT
  Age: 45 Year
  Sex: Male

DRUGS (4)
  1. ZELDOX (CAPSULES) [Suspect]
     Indication: ANXIETY
     Route: 048
  2. ZELDOX (CAPSULES) [Suspect]
     Indication: PANIC DISORDER
  3. ESCITALOPRAM OXALATE [Concomitant]
  4. PROPRANOLOL [Concomitant]

REACTIONS (2)
  - HYPOAESTHESIA [None]
  - PAIN IN EXTREMITY [None]
